FAERS Safety Report 20168983 (Version 1)
Quarter: 2021Q4

REPORT INFORMATION
  Report Type: Report from Study
  Country: CA (occurrence: CA)
  Receive Date: 20211210
  Receipt Date: 20211210
  Transmission Date: 20220303
  Serious: Yes (Hospitalization, Other)
  Sender: FDA-Public Use
  Company Number: CA-AMGEN-CANSL2021190138

PATIENT
  Age: 28 Year
  Sex: Male

DRUGS (5)
  1. NPLATE [Suspect]
     Active Substance: ROMIPLOSTIM
     Indication: Immune thrombocytopenia
     Dosage: 160 MICROGRAM, QWK
     Route: 058
     Dates: start: 2019
  2. NPLATE [Suspect]
     Active Substance: ROMIPLOSTIM
     Dosage: 250 MICROGRAM, QWK
     Route: 058
  3. NPLATE [Suspect]
     Active Substance: ROMIPLOSTIM
     Dosage: 200 MICROGRAM, QWK
     Route: 058
     Dates: start: 202012
  4. NPLATE [Suspect]
     Active Substance: ROMIPLOSTIM
     Dosage: 160 MICROGRAM, QWK
     Route: 058
     Dates: start: 202102
  5. NPLATE [Suspect]
     Active Substance: ROMIPLOSTIM
     Dosage: 160 MICROGRAM, QWK
     Route: 058
     Dates: start: 202102

REACTIONS (1)
  - Immune thrombocytopenia [Unknown]
